FAERS Safety Report 17293558 (Version 2)
Quarter: 2020Q1

REPORT INFORMATION
  Report Type: Spontaneous
  Country: FI (occurrence: FI)
  Receive Date: 20200121
  Receipt Date: 20200226
  Transmission Date: 20200409
  Serious: Yes (Other)
  Sender: FDA-Public Use
  Company Number: NVSC2020FI011458

PATIENT
  Age: 13 Year
  Sex: Female

DRUGS (1)
  1. METHOTREXATE. [Suspect]
     Active Substance: METHOTREXATE
     Indication: ACUTE LYMPHOCYTIC LEUKAEMIA
     Dosage: UNK
     Route: 065

REACTIONS (8)
  - Seizure [Unknown]
  - Paralysis [Unknown]
  - Cerebrovascular accident [Unknown]
  - Movement disorder [Unknown]
  - Dysarthria [Unknown]
  - Mental status changes [Unknown]
  - Aphasia [Unknown]
  - Hemiplegia [Unknown]
